FAERS Safety Report 12255688 (Version 1)
Quarter: 2016Q2

REPORT INFORMATION
  Report Type: Spontaneous
  Country: US (occurrence: None)
  Receive Date: 20160411
  Receipt Date: 20160411
  Transmission Date: 20160815
  Serious: Yes (Death, Hospitalization)
  Sender: FDA-Public Use
  Company Number: None

PATIENT
  Age: 50 Year
  Sex: Male
  Weight: 88.91 kg

DRUGS (2)
  1. XYLOCAINE MPF [Suspect]
     Active Substance: LIDOCAINE HYDROCHLORIDE
     Indication: RADICULAR PAIN
     Dosage: 20 MG 1 DOSE EPIDURAL
     Route: 008
     Dates: start: 20160323
  2. DEPO-MEDROL [Suspect]
     Active Substance: METHYLPREDNISOLONE ACETATE
     Indication: RADICULAR PAIN
     Dosage: 120 MG 1 DOSE EPIDURAL
     Route: 008
     Dates: start: 20160323

REACTIONS (2)
  - Meningitis viral [None]
  - Post procedural complication [None]

NARRATIVE: CASE EVENT DATE: 20160323
